FAERS Safety Report 8161133-X (Version None)
Quarter: 2012Q1

REPORT INFORMATION
  Report Type: 
  Country: None (occurrence: None)
  Receive Date: 20120224
  Receipt Date: 20120217
  Transmission Date: 20120608
  Serious: Yes (Other)
  Sender: FDA-Public Use
  Company Number: US-PFIZER INC-2012045401

PATIENT

DRUGS (1)
  1. CHANTIX [Suspect]
     Dosage: UNK
     Dates: start: 20090501

REACTIONS (10)
  - DEPRESSION [None]
  - ANGER [None]
  - ANXIETY [None]
  - ABNORMAL DREAMS [None]
  - INSOMNIA [None]
  - PANIC ATTACK [None]
  - HOMICIDAL IDEATION [None]
  - AMNESIA [None]
  - SUICIDAL IDEATION [None]
  - AGGRESSION [None]
